FAERS Safety Report 4383265-4 (Version None)
Quarter: 2004Q2

REPORT INFORMATION
  Report Type: 
  Country: None (occurrence: None)
  Receive Date: 20040618
  Receipt Date: 20040604
  Transmission Date: 20050107
  Serious: Yes (Hospitalization)
  Sender: FDA-Public Use
  Company Number: 2004-0007147

PATIENT
  Age: 39 Year
  Sex: Male
  Weight: 58 kg

DRUGS (4)
  1. VIREAD [Suspect]
     Indication: HIV INFECTION
     Dosage: 300 MG, 1 IN 1 D, ORAL
     Route: 048
     Dates: start: 20000721
  2. RIVOTRIL (CLONAZEPAM) (2 MILLIGRAM) [Suspect]
     Dosage: 2 MG, 1 IN 1 D, ORAL
     Route: 048
     Dates: start: 19991104
  3. VIDEX [Suspect]
     Dosage: 250 MG, 1 IN 1 D, ORAL
     Route: 048
     Dates: start: 20020806
  4. ZIAGEN [Suspect]
     Dosage: 2 IN 1 D
     Dates: start: 20020806

REACTIONS (6)
  - AKINESIA [None]
  - CARDIOMEGALY [None]
  - INTRACARDIAC THROMBUS [None]
  - MYOCARDIAL INFARCTION [None]
  - MYOCARDIAL ISCHAEMIA [None]
  - PERICARDIAL EFFUSION [None]
